FAERS Safety Report 8213028-0 (Version None)
Quarter: 2012Q1

REPORT INFORMATION
  Report Type: 
  Country: None (occurrence: None)
  Receive Date: 20120228
  Receipt Date: 20110822
  Transmission Date: 20120608
  Serious: Yes (Hospitalization, Other)
  Sender: FDA-Public Use
  Company Number: RB-31711-2011

PATIENT
  Age: 50 Year
  Sex: Male

DRUGS (5)
  1. LIPITOR [Concomitant]
  2. HYDROCHLOROTHIAZIDE [Concomitant]
  3. METOPROLOL SUCCINATE [Concomitant]
  4. ASPIRIN [Concomitant]
  5. SUBOXONE 8 MG [Suspect]
     Indication: DRUG DEPENDENCE
     Dosage: (12 MG   SUBLINGUAL)
     Route: 060
     Dates: start: 20110101, end: 20110820

REACTIONS (1)
  - PAIN [None]
